FAERS Safety Report 8518055-1 (Version None)
Quarter: 2012Q3

REPORT INFORMATION
  Report Type: 
  Country: None (occurrence: None)
  Receive Date: 20120718
  Receipt Date: 20110829
  Transmission Date: 20120928
  Serious: No
  Sender: FDA-Public Use
  Company Number: US-BRISTOL-MYERS SQUIBB COMPANY-16012114

PATIENT
  Age: 85 Year
  Sex: Male

DRUGS (3)
  1. CRANBERRY JUICE [Suspect]
  2. VERAPAMIL [Concomitant]
  3. WARFARIN SODIUM [Suspect]
     Dosage: RECEIVING FOR SERVERAL YEARS

REACTIONS (1)
  - RASH [None]
